FAERS Safety Report 22633585 (Version 1)
Quarter: 2023Q2

REPORT INFORMATION
  Report Type: Spontaneous
  Country: US (occurrence: US)
  Receive Date: 20230623
  Receipt Date: 20230623
  Transmission Date: 20230722
  Serious: No
  Sender: FDA-Public Use
  Company Number: US-STRIDES ARCOLAB LIMITED-2023SP009276

PATIENT
  Age: 57 Year
  Sex: Female

DRUGS (5)
  1. IBUPROFEN [Suspect]
     Active Substance: IBUPROFEN
     Indication: Scleritis
     Dosage: UNK
     Route: 065
  2. DUPILUMAB [Concomitant]
     Active Substance: DUPILUMAB
     Indication: Dermatitis atopic
     Dosage: 300 MILLIGRAM, INJECTION FOR EVERY 14 DAYS
     Route: 058
  3. DUPILUMAB [Concomitant]
     Active Substance: DUPILUMAB
     Dosage: UNK, TREATMENT WAS RESUMED
     Route: 065
  4. PREDNISOLONE ACETATE [Concomitant]
     Active Substance: PREDNISOLONE ACETATE
     Indication: Eye inflammation
     Dosage: UNK, 1 PERCENT (SIX TIMES A DAY)
     Route: 061
  5. PROPYLTHIOURACIL [Concomitant]
     Active Substance: PROPYLTHIOURACIL
     Indication: Graves^ disease
     Dosage: UNK
     Route: 065

REACTIONS (1)
  - Off label use [Unknown]
